FAERS Safety Report 13587125 (Version 2)
Quarter: 2018Q2

REPORT INFORMATION
  Report Type: Spontaneous
  Country: FR (occurrence: FR)
  Receive Date: 20170526
  Receipt Date: 20180529
  Transmission Date: 20180711
  Serious: Yes (Other)
  Sender: FDA-Public Use
  Company Number: FR-PFIZER INC-2017226053

PATIENT
  Age: 43 Year
  Sex: Male
  Weight: 51 kg

DRUGS (13)
  1. DALACINE [Suspect]
     Active Substance: CLINDAMYCIN HYDROCHLORIDE
     Indication: SPINAL CORD INFECTION
     Dosage: 600 MG, 3X/DAY
     Route: 042
     Dates: start: 20170210, end: 20170413
  2. ALGINATE DE SODIUM/BICARBONATE DE SODIUM [Concomitant]
     Dosage: 1 TO 3 DF DAILY
  3. AERIUS [Concomitant]
     Active Substance: DESLORATADINE
     Dosage: 5 MG, 1X/DAY
     Route: 048
  4. MERONEM [Concomitant]
     Active Substance: MEROPENEM
     Indication: SPINAL CORD INFECTION
     Dosage: 2 G, 3X/DAY
     Route: 042
     Dates: start: 20170210
  5. ALPRAZOLAM. [Concomitant]
     Active Substance: ALPRAZOLAM
     Dosage: 0.5 MG, 1X/DAY
     Route: 048
  6. MOVICOL [Concomitant]
     Active Substance: POLYETHYLENE GLYCOL 3350\POTASSIUM CHLORIDE\SODIUM BICARBONATE\SODIUM CHLORIDE
     Dosage: 1 TO 3 DF DAILY
     Route: 048
  7. XATRAL [Concomitant]
     Active Substance: ALFUZOSIN
     Dosage: 10 MG, 1X/DAY
     Route: 048
  8. PROHANCE [Suspect]
     Active Substance: GADOTERIDOL
     Indication: NUCLEAR MAGNETIC RESONANCE IMAGING
     Dosage: 9 ML, SINGLE
     Route: 042
     Dates: start: 20170330, end: 20170330
  9. LOVENOX [Concomitant]
     Active Substance: ENOXAPARIN SODIUM
     Dosage: 4000 IU, 1X/DAY
  10. ESCITALOPRAM [Concomitant]
     Active Substance: ESCITALOPRAM OXALATE
     Dosage: 10 MG, 1X/DAY
     Route: 048
  11. MESTINON [Concomitant]
     Active Substance: PYRIDOSTIGMINE BROMIDE
     Dosage: 120 MG IN THE MORNING, 60 MG AT MIDDAY, 120 MG IN THE EVENING
     Route: 048
  12. PANTOPRAZOLE [Concomitant]
     Active Substance: PANTOPRAZOLE
     Dosage: 20 MG, 1X/DAY
     Route: 048
  13. TARDYFERON [Concomitant]
     Active Substance: FERROUS SULFATE
     Dosage: 80 MG, 2X/DAY
     Route: 048

REACTIONS (3)
  - Eosinophilia [Recovered/Resolved]
  - Dermatitis exfoliative generalised [Recovering/Resolving]
  - Xeroderma [Recovering/Resolving]

NARRATIVE: CASE EVENT DATE: 20170404
